FAERS Safety Report 25487775 (Version 1)
Quarter: 2025Q2

REPORT INFORMATION
  Report Type: Spontaneous
  Country: JP (occurrence: JP)
  Receive Date: 20250627
  Receipt Date: 20250627
  Transmission Date: 20250717
  Serious: Yes (Other)
  Sender: JOHNSON AND JOHNSON
  Company Number: JP-NShinyaku-EVA20250154501001307081

PATIENT
  Age: 46 Year
  Sex: Female
  Weight: 104 kg

DRUGS (17)
  1. UPTRAVI [Suspect]
     Active Substance: SELEXIPAG
     Indication: Pulmonary hypertension
     Route: 048
     Dates: start: 2021
  2. UPTRAVI [Suspect]
     Active Substance: SELEXIPAG
     Dosage: INCREASED
     Route: 048
  3. METFORMIN HYDROCHLORIDE [Concomitant]
     Active Substance: METFORMIN HYDROCHLORIDE
     Indication: Diabetes mellitus
     Route: 048
  4. RABEPRAZOLE SODIUM [Concomitant]
     Active Substance: RABEPRAZOLE SODIUM
     Indication: Product used for unknown indication
     Route: 048
  5. ALLOPURINOL [Concomitant]
     Active Substance: ALLOPURINOL
     Indication: Product used for unknown indication
     Route: 048
  6. VILDAGLIPTIN [Concomitant]
     Active Substance: VILDAGLIPTIN
     Indication: Product used for unknown indication
     Route: 048
  7. WARFARIN [Concomitant]
     Active Substance: WARFARIN
     Indication: Product used for unknown indication
     Route: 048
     Dates: start: 2021
  8. ADEMPAS [Concomitant]
     Active Substance: RIOCIGUAT
     Indication: Pulmonary hypertension
     Dosage: UNKNOWN
     Route: 048
  9. ADEMPAS [Concomitant]
     Active Substance: RIOCIGUAT
     Dosage: UNKNOWN
     Route: 048
  10. TOLVAPTAN [Concomitant]
     Active Substance: TOLVAPTAN
     Indication: Cardiac failure
     Route: 065
  11. IRON [Concomitant]
     Active Substance: IRON
     Indication: Cardiac failure
     Route: 065
  12. INSULIN LISPRO(GENETICAL RECOMBINATION) [Concomitant]
     Indication: Diabetes mellitus
     Route: 058
  13. INSULIN GLARGINE [Concomitant]
     Active Substance: INSULIN GLARGINE
     Indication: Diabetes mellitus
     Route: 058
  14. GLP-1 preparation [Concomitant]
     Indication: Diabetes mellitus
     Route: 065
  15. Mineralocorticoid receptor antagonist [Concomitant]
     Indication: Cardiac failure
     Route: 065
  16. DOAC [Concomitant]
     Indication: Product used for unknown indication
     Route: 065
  17. GLYCERIN [Concomitant]
     Active Substance: GLYCERIN
     Indication: Diabetes mellitus

REACTIONS (2)
  - Obesity [Unknown]
  - Intentional dose omission [Unknown]
